FAERS Safety Report 9999725 (Version 1)
Quarter: 2014Q1

REPORT INFORMATION
  Report Type: Report from Study
  Country: JP (occurrence: JP)
  Receive Date: 20140312
  Receipt Date: 20140312
  Transmission Date: 20141002
  Serious: Yes (Hospitalization, Other)
  Sender: FDA-Public Use
  Company Number: JP-ALLERGAN-1404323US

PATIENT
  Age: 64 Year
  Sex: Male

DRUGS (4)
  1. BRIMONIDINE 1MG/ML SOL (9541X) [Suspect]
     Indication: OPEN ANGLE GLAUCOMA
     Dosage: 1 DROP IN EACH EYE, TWICE A DAY
     Route: 047
     Dates: start: 20130810
  2. COSOPT [Concomitant]
     Dosage: UNK
  3. TAPROS [Concomitant]
     Dosage: UNK
  4. LIMARMONE [Concomitant]
     Dosage: UNK
     Route: 048

REACTIONS (3)
  - Cerebral thrombosis [Recovering/Resolving]
  - Hemiplegia [Recovering/Resolving]
  - Dry eye [Recovering/Resolving]
